FAERS Safety Report 6882370-8 (Version None)
Quarter: 2010Q3

REPORT INFORMATION
  Report Type: 
  Country: None (occurrence: None)
  Receive Date: 20100728
  Receipt Date: 20100728
  Transmission Date: 20110219
  Serious: Yes (Life-Threatening, Hospitalization)
  Sender: FDA-Public Use
  Company Number: None

PATIENT
  Age: 59 Year
  Sex: Male

DRUGS (2)
  1. PROPOFOL [Suspect]
     Dosage: 200 MG ONCE IV
     Route: 042
     Dates: start: 20100413, end: 20100413
  2. LIDOCAINE [Suspect]
     Dosage: ONCE TOP
     Route: 061
     Dates: start: 20100413, end: 20100413

REACTIONS (1)
  - ANAPHYLACTIC REACTION [None]
